FAERS Safety Report 13170700 (Version 2)
Quarter: 2018Q1

REPORT INFORMATION
  Report Type: Report from Study
  Country: None (occurrence: DE)
  Receive Date: 20170201
  Receipt Date: 20180125
  Transmission Date: 20180508
  Serious: Yes (Hospitalization)
  Sender: FDA-Public Use
  Company Number: DE-ABBVIE-15K-062-1396664-00

PATIENT
  Age: 30 Year
  Sex: Female

DRUGS (5)
  1. PANTOPRAZOLE [Concomitant]
     Active Substance: PANTOPRAZOLE
     Indication: PRODUCT USED FOR UNKNOWN INDICATION
  2. COLO-PLEON [Concomitant]
     Indication: PRODUCT USED FOR UNKNOWN INDICATION
  3. HUMIRA [Suspect]
     Active Substance: ADALIMUMAB
     Indication: COLITIS ULCERATIVE
     Route: 058
     Dates: start: 20150227, end: 20160908
  4. HUMIRA [Suspect]
     Active Substance: ADALIMUMAB
     Indication: COLITIS ULCERATIVE
     Route: 058
  5. PREDNISOLONE. [Concomitant]
     Active Substance: PREDNISOLONE
     Indication: PRODUCT USED FOR UNKNOWN INDICATION

REACTIONS (6)
  - Pulmonary embolism [Recovered/Resolved]
  - Cholelithiasis [Not Recovered/Not Resolved]
  - Cardiac function disturbance postoperative [Recovered/Resolved]
  - Pulmonary hypertension [Recovered/Resolved]
  - Post procedural haemorrhage [Recovered/Resolved]
  - Post procedural pneumonia [Recovered/Resolved]

NARRATIVE: CASE EVENT DATE: 20150513
